FAERS Safety Report 8585043-9 (Version None)
Quarter: 2012Q3

REPORT INFORMATION
  Report Type: 
  Country: None (occurrence: None)
  Receive Date: 20120810
  Receipt Date: 20120802
  Transmission Date: 20120928
  Serious: Yes (Other)
  Sender: FDA-Public Use
  Company Number: JP-VERTEX PHARMACEUTICALS INC.-AE-2012-011617

PATIENT
  Age: 62 Year
  Sex: Female

DRUGS (7)
  1. REBETOL [Concomitant]
     Indication: HEPATITIS C
     Route: 048
     Dates: start: 20120604, end: 20120611
  2. URSO 250 [Concomitant]
     Route: 048
     Dates: start: 20120620
  3. URSO 250 [Concomitant]
     Route: 048
     Dates: end: 20120609
  4. PEG-INTRON [Concomitant]
     Indication: HEPATITIS C
     Route: 058
     Dates: start: 20120604, end: 20120604
  5. TELAVIC (TELAPREVIR) [Suspect]
     Route: 048
     Dates: start: 20120605, end: 20120605
  6. TELAVIC (TELAPREVIR) [Suspect]
     Indication: HEPATITIS C
     Route: 048
     Dates: start: 20120604, end: 20120604
  7. POVIDONE IODINE [Concomitant]
     Route: 049
     Dates: start: 20120607

REACTIONS (1)
  - NEUTROPHIL COUNT DECREASED [None]
